FAERS Safety Report 8976286 (Version 1)
Quarter: 2012Q4

REPORT INFORMATION
  Report Type: 
  Country: DE (occurrence: DE)
  Receive Date: 20121220
  Receipt Date: 20121220
  Transmission Date: 20130627
  Serious: Yes (Other)
  Sender: FDA-Public Use
  Company Number: DE-PFIZER INC-2012315827

PATIENT
  Sex: Male

DRUGS (1)
  1. TORISEL [Suspect]
     Dosage: UNK
     Dates: start: 201210

REACTIONS (3)
  - Dysphagia [Recovered/Resolved]
  - Fatigue [Recovered/Resolved]
  - Apathy [Recovered/Resolved]
